FAERS Safety Report 21915301 (Version 1)
Quarter: 2023Q1

REPORT INFORMATION
  Report Type: Spontaneous
  Country: US (occurrence: US)
  Receive Date: 20230126
  Receipt Date: 20230126
  Transmission Date: 20230418
  Serious: No
  Sender: FDA-Public Use
  Company Number: US-SA-SAC20230124000816

PATIENT
  Sex: Male
  Weight: 114 kg

DRUGS (11)
  1. DUPIXENT [Suspect]
     Active Substance: DUPILUMAB
     Indication: Asthma
     Dosage: 300 MG, QOW
     Route: 058
  2. DUPIXENT [Suspect]
     Active Substance: DUPILUMAB
     Indication: Nasal polyps
  3. AZITHROMYCIN [Concomitant]
     Active Substance: AZITHROMYCIN
  4. MELOXICAM [Concomitant]
     Active Substance: MELOXICAM
  5. CYANOCOBALAMIN [Concomitant]
     Active Substance: CYANOCOBALAMIN
  6. OMEPRAZOLE [Concomitant]
     Active Substance: OMEPRAZOLE
  7. SYMBICORT [Concomitant]
     Active Substance: BUDESONIDE\FORMOTEROL FUMARATE DIHYDRATE
     Indication: Asthma
     Dosage: 10 MG
  8. SINGULAIR [Concomitant]
     Active Substance: MONTELUKAST SODIUM
  9. MEDROL [Concomitant]
     Active Substance: METHYLPREDNISOLONE
  10. PROVENTIL HFA [SALBUTAMOL] [Concomitant]
  11. VITAMINS [Concomitant]
     Active Substance: VITAMINS

REACTIONS (1)
  - Renal disorder [Not Recovered/Not Resolved]
